FAERS Safety Report 9316740 (Version 2)
Quarter: 2013Q3

REPORT INFORMATION
  Report Type: Report from Study
  Country: CA (occurrence: CA)
  Receive Date: 20130530
  Receipt Date: 20130718
  Transmission Date: 20140515
  Serious: Yes (Hospitalization, Other)
  Sender: FDA-Public Use
  Company Number: CA-ABBOTT-13P-028-1094332-00

PATIENT
  Sex: Male
  Weight: 80.81 kg

DRUGS (3)
  1. LUPRON DEPOT [Suspect]
     Indication: PROSTATE CANCER
     Route: 030
     Dates: start: 20120418
  2. LUPRON DEPOT [Suspect]
     Route: 030
     Dates: start: 20010605, end: 20020917
  3. CASODEX [Concomitant]
     Indication: PROSTATE CANCER
     Route: 048
     Dates: start: 20120404

REACTIONS (2)
  - Hepatic lesion [Unknown]
  - Colon cancer [Unknown]
